FAERS Safety Report 13230672 (Version 1)
Quarter: 2017Q1

REPORT INFORMATION
  Report Type: Spontaneous
  Country: US (occurrence: US)
  Receive Date: 20170214
  Receipt Date: 20170214
  Transmission Date: 20170428
  Serious: No
  Sender: FDA-Public Use
  Company Number: US-BAUSCH-BL-2016-029955

PATIENT
  Sex: Female
  Weight: 43.13 kg

DRUGS (3)
  1. METROCREAM [Concomitant]
     Active Substance: METRONIDAZOLE
     Indication: ROSACEA
     Route: 061
     Dates: start: 2006
  2. KLARON [Suspect]
     Active Substance: SULFACETAMIDE SODIUM
     Indication: ROSACEA
     Route: 061
     Dates: start: 2006, end: 201609
  3. KLARON [Suspect]
     Active Substance: SULFACETAMIDE SODIUM
     Route: 061
     Dates: start: 20060906

REACTIONS (4)
  - Erythema [Recovered/Resolved]
  - Burning sensation [Recovered/Resolved]
  - Expired product administered [Unknown]
  - Drug ineffective [Unknown]

NARRATIVE: CASE EVENT DATE: 2016
